FAERS Safety Report 9435313 (Version 2)
Quarter: 2013Q3

REPORT INFORMATION
  Report Type: Spontaneous
  Country: ES (occurrence: None)
  Receive Date: 20130730
  Receipt Date: 20130812
  Transmission Date: 20140515
  Serious: Yes (Hospitalization, Other)
  Sender: FDA-Public Use
  Company Number: 2013AP006884

PATIENT
  Age: 41 Year
  Sex: Female

DRUGS (2)
  1. RISPERIDONE [Suspect]
     Indication: MENTAL DISORDER
  2. DOSTINEX [Suspect]
     Indication: LACTATION INHIBITION THERAPY

REACTIONS (7)
  - Schizoaffective disorder [None]
  - Postpartum disorder [None]
  - Suicide attempt [None]
  - Intentional overdose [None]
  - Twin pregnancy [None]
  - Maternal exposure during pregnancy [None]
  - Caesarean section [None]
